FAERS Safety Report 6595273-3 (Version None)
Quarter: 2010Q1

REPORT INFORMATION
  Report Type: 
  Country: None (occurrence: None)
  Receive Date: 20100212
  Receipt Date: 20100202
  Transmission Date: 20100710
  Serious: Yes (Hospitalization)
  Sender: FDA-Public Use
  Company Number: 2010PL000010

PATIENT
  Age: 45 Year
  Sex: Female

DRUGS (2)
  1. IMURAN [Suspect]
     Indication: AUTOIMMUNE HEPATITIS
     Dosage: QD
     Dates: start: 20040801, end: 20040901
  2. PREDNISONE [Concomitant]

REACTIONS (1)
  - ANAPHYLACTIC SHOCK [None]
